FAERS Safety Report 14391894 (Version 1)
Quarter: 2018Q1

REPORT INFORMATION
  Report Type: Spontaneous
  Country: US (occurrence: US)
  Receive Date: 20180116
  Receipt Date: 20180116
  Transmission Date: 20180509
  Serious: No
  Sender: FDA-Public Use
  Company Number: US-009507513-1712USA009253

PATIENT
  Age: 31 Year
  Sex: Female
  Weight: 58.96 kg

DRUGS (1)
  1. NEXPLANON [Suspect]
     Active Substance: ETONOGESTREL
     Indication: CONTRACEPTION
     Dosage: IMPLANT, LEFT ARM, EVERY 3 YEARS
     Route: 059
     Dates: start: 20160311

REACTIONS (5)
  - Breast feeding [Unknown]
  - Menorrhagia [Unknown]
  - Menstrual disorder [Unknown]
  - Amenorrhoea [Recovered/Resolved]
  - Loss of libido [Unknown]

NARRATIVE: CASE EVENT DATE: 201704
